FAERS Safety Report 25443089 (Version 1)
Quarter: 2025Q2

REPORT INFORMATION
  Report Type: Spontaneous
  Country: CN (occurrence: CN)
  Receive Date: 20250617
  Receipt Date: 20250617
  Transmission Date: 20250717
  Serious: Yes (Other)
  Sender: BRISTOL-MYERS SQUIBB COMPANY
  Company Number: CN-BRISTOL-MYERS SQUIBB COMPANY-2025-085385

PATIENT
  Age: 43 Year
  Sex: Male

DRUGS (3)
  1. AUGTYRO [Suspect]
     Active Substance: REPOTRECTINIB
     Indication: Product used for unknown indication
     Dates: start: 2025, end: 202505
  2. AUGTYRO [Suspect]
     Active Substance: REPOTRECTINIB
     Dates: start: 202505, end: 202505
  3. AUGTYRO [Suspect]
     Active Substance: REPOTRECTINIB
     Dates: start: 202505

REACTIONS (4)
  - Glutamate dehydrogenase increased [Unknown]
  - Alanine aminotransferase increased [Unknown]
  - Dizziness [Recovering/Resolving]
  - Muscular weakness [Unknown]

NARRATIVE: CASE EVENT DATE: 20250101
